FAERS Safety Report 16590590 (Version 2)
Quarter: 2019Q3

REPORT INFORMATION
  Report Type: Report from Study
  Country: JP (occurrence: JP)
  Receive Date: 20190718
  Receipt Date: 20190905
  Transmission Date: 20191004
  Serious: Yes (Hospitalization)
  Sender: FDA-Public Use
  Company Number: JP-BEH-2019104399

PATIENT
  Age: 74 Year
  Sex: Male
  Weight: 54 kg

DRUGS (20)
  1. CEFAZOLIN SODIUM. [Concomitant]
     Active Substance: CEFAZOLIN SODIUM
     Indication: INFECTION PROPHYLAXIS
     Dosage: UNK
     Route: 065
     Dates: start: 20180130, end: 20180202
  2. FEBURIC [Concomitant]
     Active Substance: FEBUXOSTAT
     Route: 048
  3. BERIPLEX P/N [Suspect]
     Active Substance: COAGULATION FACTOR IX HUMAN\COAGULATION FACTOR VII HUMAN\COAGULATION FACTOR X HUMAN\PROTEIN C\PROTEIN S HUMAN\PROTHROMBIN
     Indication: EMERGENCY CARE
     Dosage: 1350 INTERNATIONAL UNIT, OD
     Route: 042
     Dates: start: 20180130, end: 20180130
  4. WARFARIN [WARFARIN POTASSIUM] [Concomitant]
     Active Substance: WARFARIN POTASSIUM
     Indication: PROPHYLAXIS
  5. CERCINE [Concomitant]
     Active Substance: DIAZEPAM
     Indication: SURGERY
     Dosage: UNK
     Route: 065
     Dates: start: 20180130, end: 20180130
  6. XYLOCAINE [Concomitant]
     Active Substance: LIDOCAINE HYDROCHLORIDE
     Indication: SURGERY
     Dosage: UNK
     Route: 065
     Dates: start: 20180130, end: 20180130
  7. MAINTATE [Concomitant]
     Active Substance: BISOPROLOL FUMARATE
     Route: 048
  8. ELIQUIS [Concomitant]
     Active Substance: APIXABAN
     Indication: ATRIAL FIBRILLATION
     Dosage: 10 MILLIGRAM, QD
     Route: 048
     Dates: start: 20180213
  9. BERIPLEX P/N [Suspect]
     Active Substance: COAGULATION FACTOR IX HUMAN\COAGULATION FACTOR VII HUMAN\COAGULATION FACTOR X HUMAN\PROTEIN C\PROTEIN S HUMAN\PROTHROMBIN
     Indication: SURGERY
  10. ELIQUIS [Concomitant]
     Active Substance: APIXABAN
     Indication: CEREBRAL INFARCTION
     Dosage: 10 MILLIGRAM, QD
     Route: 048
     Dates: start: 20180207, end: 20180209
  11. ELIQUIS [Concomitant]
     Active Substance: APIXABAN
     Indication: PROPHYLAXIS
  12. PENTAGIN [PENTAZOCINE HYDROCHLORIDE] [Concomitant]
     Indication: SURGERY
     Dosage: UNK
     Route: 065
     Dates: start: 20180130, end: 20180130
  13. BERIPLEX P/N [Suspect]
     Active Substance: COAGULATION FACTOR IX HUMAN\COAGULATION FACTOR VII HUMAN\COAGULATION FACTOR X HUMAN\PROTEIN C\PROTEIN S HUMAN\PROTHROMBIN
     Indication: EMERGENCY CARE
     Dosage: 1350 INTERNATIONAL UNIT, OD
     Route: 042
     Dates: start: 20180130, end: 20180130
  14. BERIPLEX P/N [Suspect]
     Active Substance: COAGULATION FACTOR IX HUMAN\COAGULATION FACTOR VII HUMAN\COAGULATION FACTOR X HUMAN\PROTEIN C\PROTEIN S HUMAN\PROTHROMBIN
     Indication: PROCOAGULANT THERAPY
  15. BERIPLEX P/N [Suspect]
     Active Substance: COAGULATION FACTOR IX HUMAN\COAGULATION FACTOR VII HUMAN\COAGULATION FACTOR X HUMAN\PROTEIN C\PROTEIN S HUMAN\PROTHROMBIN
     Indication: PROCOAGULANT THERAPY
  16. MARCAIN [BUPIVACAINE HYDROCHLORIDE] [Concomitant]
     Active Substance: BUPIVACAINE HYDROCHLORIDE
     Indication: SURGERY
     Dosage: UNK
     Route: 065
     Dates: start: 20180130, end: 20180130
  17. WARFARIN [WARFARIN POTASSIUM] [Concomitant]
     Active Substance: WARFARIN POTASSIUM
     Indication: ATRIAL FIBRILLATION
     Dosage: 1.5 UNK
     Route: 048
     Dates: end: 20180129
  18. BLOPRESS [Concomitant]
     Active Substance: CANDESARTAN CILEXETIL
     Route: 048
  19. BERIPLEX P/N [Suspect]
     Active Substance: COAGULATION FACTOR IX HUMAN\COAGULATION FACTOR VII HUMAN\COAGULATION FACTOR X HUMAN\PROTEIN C\PROTEIN S HUMAN\PROTHROMBIN
     Indication: SURGERY
  20. WARFARIN [WARFARIN POTASSIUM] [Concomitant]
     Active Substance: WARFARIN POTASSIUM
     Indication: CEREBRAL INFARCTION
     Dosage: 1 MILLIGRAM, QD
     Route: 048
     Dates: end: 20180129

REACTIONS (1)
  - Pneumonia [Recovered/Resolved]

NARRATIVE: CASE EVENT DATE: 20180208
